FAERS Safety Report 4316016-X (Version None)
Quarter: 2004Q1

REPORT INFORMATION
  Report Type: 
  Country: None (occurrence: None)
  Receive Date: 20040311
  Receipt Date: 20040302
  Transmission Date: 20041129
  Serious: Yes (Hospitalization)
  Sender: FDA-Public Use
  Company Number: WAES 0403FRA00013

PATIENT
  Age: 45 Year
  Sex: Male
  Weight: 67 kg

DRUGS (4)
  1. CRIXIVAN [Suspect]
     Indication: HIV INFECTION
     Route: 048
     Dates: start: 19970301, end: 20020824
  2. LAMIVUDINE [Concomitant]
     Indication: HIV INFECTION
     Route: 048
     Dates: start: 19970301
  3. PYRIMETHAMINE [Suspect]
     Indication: TOXOPLASMOSIS
     Route: 048
     Dates: start: 19970101, end: 20020821
  4. STAVUDINE [Concomitant]
     Indication: HIV INFECTION
     Route: 048
     Dates: start: 19970301

REACTIONS (7)
  - ANAEMIA MACROCYTIC [None]
  - HAEMOLYSIS [None]
  - HEADACHE [None]
  - LEUKOPENIA [None]
  - PANCYTOPENIA [None]
  - THROMBOCYTOPENIA [None]
  - VERTIGO [None]
